FAERS Safety Report 4525722-3 (Version None)
Quarter: 2004Q4

REPORT INFORMATION
  Report Type: 
  Country: None (occurrence: None)
  Receive Date: 20041116
  Receipt Date: 20041014
  Transmission Date: 20050328
  Serious: No
  Sender: FDA-Public Use
  Company Number: S04-USA-06759-01

PATIENT
  Age: 83 Year
  Sex: Female

DRUGS (8)
  1. NAMENDA [Suspect]
     Indication: DEMENTIA
     Dosage: 5 MG QD PO
     Route: 048
     Dates: start: 20041003, end: 20041009
  2. NAMENDA [Suspect]
     Indication: DEMENTIA
     Dosage: 5 MG BID PO
     Route: 048
     Dates: start: 20041010
  3. ARICEPT [Concomitant]
  4. ZOLOFT [Concomitant]
  5. ZOCOR [Concomitant]
  6. ARTHROTEC [Concomitant]
  7. DITROPAN [Concomitant]
  8. EVISTA [Concomitant]

REACTIONS (4)
  - CONFUSIONAL STATE [None]
  - CONSTIPATION [None]
  - DIZZINESS [None]
  - SOMNOLENCE [None]
